FAERS Safety Report 20491962 (Version 1)
Quarter: 2022Q1

REPORT INFORMATION
  Report Type: Spontaneous
  Country: US (occurrence: US)
  Receive Date: 20220218
  Receipt Date: 20220218
  Transmission Date: 20220424
  Serious: No
  Sender: FDA-Public Use
  Company Number: US-PFIZER INC-2021568029

PATIENT
  Age: 66 Year
  Sex: Female
  Weight: 33.5 kg

DRUGS (5)
  1. SILDENAFIL CITRATE [Suspect]
     Active Substance: SILDENAFIL CITRATE
     Indication: Pulmonary arterial hypertension
     Dosage: UNK
  2. SILDENAFIL CITRATE [Suspect]
     Active Substance: SILDENAFIL CITRATE
     Dosage: UNK (INCREASED DOSE)
     Dates: start: 202104
  3. REMODULIN [Suspect]
     Active Substance: TREPROSTINIL
     Indication: Pulmonary arterial hypertension
     Dosage: UNK
     Route: 058
     Dates: start: 20150202
  4. REMODULIN [Suspect]
     Active Substance: TREPROSTINIL
     Dosage: 0.108 UG/KG
     Route: 058
  5. AMLODIPINE BESYLATE [Concomitant]
     Active Substance: AMLODIPINE BESYLATE
     Dosage: UNK

REACTIONS (2)
  - Hyperhidrosis [Unknown]
  - Vein disorder [Unknown]

NARRATIVE: CASE EVENT DATE: 20210401
